FAERS Safety Report 9995517 (Version 1)
Quarter: 2014Q1

REPORT INFORMATION
  Report Type: Spontaneous
  Country: US (occurrence: None)
  Receive Date: 20140306
  Receipt Date: 20140306
  Transmission Date: 20141002
  Serious: Yes (Hospitalization)
  Sender: FDA-Public Use
  Company Number: FK201400686

PATIENT
  Age: 51 Year
  Sex: Female

DRUGS (1)
  1. CYANOCOBALAMIN [Suspect]
     Indication: PRODUCT USED FOR UNKNOWN INDICATION
     Dosage: 1000 UG, MONTHLY, LEFT DELTOID
     Dates: start: 201401, end: 20140214

REACTIONS (3)
  - Injection site erythema [None]
  - Injection site swelling [None]
  - Injection site rash [None]
